FAERS Safety Report 19833125 (Version 3)
Quarter: 2021Q4

REPORT INFORMATION
  Report Type: Report from Study
  Country: US (occurrence: US)
  Receive Date: 20210915
  Receipt Date: 20211207
  Transmission Date: 20220303
  Serious: Yes (Other)
  Sender: FDA-Public Use
  Company Number: US-BAUSCH-BL-2021-029839

PATIENT
  Age: 61 Year
  Sex: Male

DRUGS (2)
  1. MEPHYTON [Suspect]
     Active Substance: PHYTONADIONE
     Indication: Thrombosis
     Route: 065
     Dates: end: 202108
  2. XIFAXAN [Suspect]
     Active Substance: RIFAXIMIN
     Indication: Product used for unknown indication
     Route: 065

REACTIONS (4)
  - Dementia [Unknown]
  - Liver disorder [Unknown]
  - Therapy interrupted [Unknown]
  - Insurance issue [Unknown]

NARRATIVE: CASE EVENT DATE: 20210801
